FAERS Safety Report 22037338 (Version 10)
Quarter: 2024Q2

REPORT INFORMATION
  Report Type: Report from Study
  Country: CA (occurrence: CA)
  Receive Date: 20230226
  Receipt Date: 20240614
  Transmission Date: 20240716
  Serious: Yes (Other)
  Sender: FDA-Public Use
  Company Number: CA-JNJFOC-20220925029

PATIENT
  Age: 30 Year
  Sex: Female

DRUGS (4)
  1. REMICADE [Suspect]
     Active Substance: INFLIXIMAB
     Indication: Colitis ulcerative
     Route: 041
     Dates: start: 20170502
  2. REMICADE [Suspect]
     Active Substance: INFLIXIMAB
     Dosage: ON 20-JUN-2023, THE PATIENT RECEIVED LAST INFUSION. ON 01-AUG-2023, THE PATIENT WAS WELL FOR REMICAD
     Route: 041
  3. REMICADE [Suspect]
     Active Substance: INFLIXIMAB
     Dosage: ON 20-JUN-2023, THE PATIENT RECEIVED LAST INFUSION. ON 01-AUG-2023, THE PATIENT WAS WELL FOR REMICAD
     Route: 041
  4. REMICADE [Suspect]
     Active Substance: INFLIXIMAB
     Route: 041
     Dates: start: 20170502

REACTIONS (15)
  - Pneumonia [Unknown]
  - Caesarean section [Recovering/Resolving]
  - Exposure during pregnancy [Recovered/Resolved]
  - Respiratory syncytial virus infection [Unknown]
  - Sinusitis [Unknown]
  - Asthma [Unknown]
  - Pruritus [Not Recovered/Not Resolved]
  - Arthralgia [Not Recovered/Not Resolved]
  - Inappropriate schedule of product administration [Unknown]
  - Product dose omission issue [Unknown]
  - Off label use [Unknown]
  - Sciatica [Unknown]
  - Arthralgia [Not Recovered/Not Resolved]
  - Back pain [Unknown]
  - Cystitis [Recovered/Resolved]

NARRATIVE: CASE EVENT DATE: 20170502
